FAERS Safety Report 7120139-X (Version None)
Quarter: 2010Q4

REPORT INFORMATION
  Report Type: 
  Country: None (occurrence: None)
  Receive Date: 20101123
  Receipt Date: 20101109
  Transmission Date: 20110411
  Serious: Yes (Hospitalization, Other)
  Sender: FDA-Public Use
  Company Number: US-ELI_LILLY_AND_COMPANY-US201004008095

PATIENT
  Sex: Female

DRUGS (11)
  1. FORTEO [Suspect]
     Indication: OSTEOPOROSIS
  2. FORTEO [Suspect]
  3. FORTEO [Suspect]
     Dosage: 20 UG, DAILY (1/D)
  4. LEXAPRO [Concomitant]
     Dosage: 20 MG, UNK
  5. SIMVASTATIN [Concomitant]
     Dosage: 20 MG, UNK
  6. FISH OIL [Concomitant]
  7. MULTI-VITAMIN [Concomitant]
  8. VITAMIN D [Concomitant]
  9. CALCIUM [Concomitant]
  10. ASA [Concomitant]
  11. JUICE PLUS [Concomitant]

REACTIONS (4)
  - FALL [None]
  - HIP FRACTURE [None]
  - INJECTION SITE HAEMATOMA [None]
  - UPPER LIMB FRACTURE [None]
